FAERS Safety Report 14934586 (Version 2)
Quarter: 2018Q2

REPORT INFORMATION
  Report Type: Report from Study
  Country: DE (occurrence: DE)
  Receive Date: 20180524
  Receipt Date: 20180601
  Transmission Date: 20180711
  Serious: Yes (Hospitalization, Other)
  Sender: FDA-Public Use
  Company Number: PHHY2017DE128629

PATIENT
  Age: 29 Year
  Sex: Female

DRUGS (5)
  1. OMNITROPE [Suspect]
     Active Substance: SOMATROPIN
     Dosage: 0.8 MG, QD (10 MG/1.5 ML) (LIQUID FOR INJECTION)
     Route: 058
     Dates: start: 20160113
  2. HYDROCORTISONE. [Concomitant]
     Active Substance: HYDROCORTISONE
     Indication: ADRENOCORTICOTROPIC HORMONE DEFICIENCY
     Dosage: UNK
     Route: 048
     Dates: start: 20100709
  3. HYDROXYCARBAMIDE [Concomitant]
     Active Substance: HYDROXYUREA
     Indication: CYTOGENETIC ABNORMALITY
     Route: 048
  4. OMNITROPE [Suspect]
     Active Substance: SOMATROPIN
     Indication: GROWTH HORMONE DEFICIENCY
     Dosage: 0.8 MG/KG, QD
     Route: 058
     Dates: start: 20140918
  5. HYDROXYCARBAMIDE [Concomitant]
     Active Substance: HYDROXYUREA
     Indication: SICKLE CELL ANAEMIA

REACTIONS (10)
  - Back pain [Unknown]
  - Pain [Recovered/Resolved]
  - Dizziness [Not Recovered/Not Resolved]
  - Sickle cell anaemia with crisis [Recovered/Resolved]
  - Bone pain [Unknown]
  - Abdominal pain [Unknown]
  - Sickle cell anaemia with crisis [Recovered/Resolved]
  - Fatigue [Recovered/Resolved]
  - Sickle cell anaemia with crisis [Recovered/Resolved]
  - Urinary tract infection [Recovered/Resolved]

NARRATIVE: CASE EVENT DATE: 201701
